FAERS Safety Report 6170438-3 (Version None)
Quarter: 2009Q2

REPORT INFORMATION
  Report Type: 
  Country: None (occurrence: None)
  Receive Date: 20090428
  Receipt Date: 20090416
  Transmission Date: 20091009
  Serious: Yes (Hospitalization, Other)
  Sender: FDA-Public Use
  Company Number: US-GENENTECH-281755

PATIENT
  Age: 74 Year
  Sex: Female

DRUGS (3)
  1. ACTIVASE [Suspect]
     Indication: CEREBRAL ARTERY OCCLUSION
     Dosage: 6 MG/KG, UNK
     Route: 042
  2. UROKINASE [Suspect]
     Indication: CEREBRAL ARTERY OCCLUSION
     Dosage: 150000 U, UNK
     Route: 013
  3. INTEGRILIN [Suspect]
     Indication: CEREBRAL ARTERY OCCLUSION
     Dosage: 6 MG, UNK
     Route: 013

REACTIONS (5)
  - CEREBRAL INFARCTION [None]
  - DRUG INEFFECTIVE [None]
  - HAEMATOMA [None]
  - HYPOTENSION [None]
  - VASCULAR PSEUDOANEURYSM [None]
